FAERS Safety Report 9847774 (Version 1)
Quarter: 2014Q1

REPORT INFORMATION
  Report Type: Spontaneous
  Country: US (occurrence: US)
  Receive Date: 20140128
  Receipt Date: 20140128
  Transmission Date: 20141002
  Serious: No
  Sender: FDA-Public Use
  Company Number: US-BIOGENIDEC-2014BI006433

PATIENT
  Age: 34 Year
  Sex: Male

DRUGS (8)
  1. TECFIDERA [Suspect]
     Indication: MULTIPLE SCLEROSIS
     Route: 048
     Dates: start: 20131120
  2. HADOL [Concomitant]
  3. RISPERDAL [Concomitant]
  4. CELEXA [Concomitant]
  5. PROTONIX [Concomitant]
  6. COLACE [Concomitant]
  7. CLARITIN [Concomitant]
  8. TYLENOL [Concomitant]

REACTIONS (2)
  - Suicidal ideation [Not Recovered/Not Resolved]
  - General symptom [Unknown]
